FAERS Safety Report 6957674-0 (Version None)
Quarter: 2010Q3

REPORT INFORMATION
  Report Type: 
  Country: None (occurrence: None)
  Receive Date: 20100831
  Receipt Date: 20100818
  Transmission Date: 20110219
  Serious: Yes (Other)
  Sender: FDA-Public Use
  Company Number: PHHY2010JP54762

PATIENT

DRUGS (9)
  1. CYCLOSPORINE [Suspect]
     Indication: STEM CELL TRANSPLANT
     Dosage: 3 MG/KG/DAY
     Route: 042
  2. METHOTREXATE [Suspect]
     Indication: STEM CELL TRANSPLANT
     Dosage: 10 MG/SQM
  3. METHOTREXATE [Suspect]
     Dosage: 7 MG/SQM
  4. STEROIDS NOS [Suspect]
  5. CLARITHROMYCIN [Concomitant]
     Dosage: 200 MG/DAY
     Route: 048
  6. ITRACONAZOLE [Concomitant]
     Dosage: ITRACONAZOLE
     Route: 048
  7. SULFAMETHOXAZOLE AND TRIMETHOPRIM [Concomitant]
     Dosage: 320/1.600 MG DAILY
  8. MEROPENEM [Concomitant]
     Dosage: 0.5 G EVERY 8 HOURS
  9. PREDNISOLONE [Concomitant]
     Dosage: 0.5 MG/KG

REACTIONS (10)
  - CHEST DISCOMFORT [None]
  - CHRONIC GRAFT VERSUS HOST DISEASE [None]
  - CYTOMEGALOVIRUS TEST POSITIVE [None]
  - DYSPNOEA [None]
  - DYSPNOEA EXERTIONAL [None]
  - NOCARDIOSIS [None]
  - OBLITERATIVE BRONCHIOLITIS [None]
  - PRODUCTIVE COUGH [None]
  - RENAL IMPAIRMENT [None]
  - SICCA SYNDROME [None]
